FAERS Safety Report 10457225 (Version 1)
Quarter: 2014Q3

REPORT INFORMATION
  Report Type: Spontaneous
  Country: US (occurrence: US)
  Receive Date: 20140916
  Receipt Date: 20140916
  Transmission Date: 20150326
  Serious: No
  Sender: FDA-Public Use
  Company Number: US-ENDO PHARMACEUTICALS INC.-BUTA20130012

PATIENT
  Age: 65 Year
  Sex: Female

DRUGS (2)
  1. DIAZEPAM. [Concomitant]
     Active Substance: DIAZEPAM
     Indication: PRODUCT USED FOR UNKNOWN INDICATION
     Route: 048
  2. BUTALBITAL, ACETAMINOPHEN, CAFFEINE [Suspect]
     Active Substance: ACETAMINOPHEN\BUTALBITAL\CAFFEINE
     Indication: PRODUCT USED FOR UNKNOWN INDICATION
     Dosage: 100/650/80MG
     Route: 048
     Dates: start: 20130825

REACTIONS (3)
  - Somnolence [Unknown]
  - Vision blurred [Unknown]
  - Mood altered [Unknown]

NARRATIVE: CASE EVENT DATE: 20130825
